FAERS Safety Report 5481384-2 (Version None)
Quarter: 2007Q4

REPORT INFORMATION
  Report Type: 
  Country: None (occurrence: None)
  Receive Date: 20071005
  Receipt Date: 20071005
  Transmission Date: 20080405
  Serious: Yes (Other)
  Sender: FDA-Public Use
  Company Number: None

PATIENT
  Age: 47 Year
  Sex: Female
  Weight: 74.8435 kg

DRUGS (1)
  1. BUPROPION HCL [Suspect]
     Indication: DEPRESSION
     Dosage: 1 TABLET TWICE A DAY PO ONCE A DAY
     Route: 048
     Dates: start: 20070808, end: 20071003

REACTIONS (7)
  - CARDIAC DISORDER [None]
  - DISTURBANCE IN ATTENTION [None]
  - MALAISE [None]
  - PHARMACEUTICAL PRODUCT COMPLAINT [None]
  - POOR QUALITY DRUG ADMINISTERED [None]
  - TREMOR [None]
  - VISUAL DISTURBANCE [None]
